FAERS Safety Report 14183957 (Version 4)
Quarter: 2018Q3

REPORT INFORMATION
  Report Type: Spontaneous
  Country: US (occurrence: US)
  Receive Date: 20171113
  Receipt Date: 20180814
  Transmission Date: 20181010
  Serious: No
  Sender: FDA-Public Use
  Company Number: US-CELLTRION INC.-2017US011376

PATIENT

DRUGS (8)
  1. INFLECTRA [Suspect]
     Active Substance: INFLIXIMAB-DYYB
     Dosage: 5.6 MG/KG, UNK
     Route: 042
     Dates: start: 20171004, end: 20171004
  2. INFLECTRA [Suspect]
     Active Substance: INFLIXIMAB-DYYB
     Dosage: 5.6 MG/KG, UNK
     Route: 042
     Dates: start: 20170906, end: 20170906
  3. INFLECTRA [Suspect]
     Active Substance: INFLIXIMAB-DYYB
     Dosage: UNK
     Route: 065
     Dates: start: 20180202, end: 20180202
  4. INFLECTRA [Suspect]
     Active Substance: INFLIXIMAB-DYYB
     Dosage: 8 DF(8 VIALS EVERY 6 WEEKS)
     Route: 065
  5. INFLECTRA [Suspect]
     Active Substance: INFLIXIMAB-DYYB
     Dosage: 8 DF(8 VIALS EVERY 6 WEEKS)
     Route: 065
     Dates: start: 20180418, end: 20180418
  6. INFLECTRA [Suspect]
     Active Substance: INFLIXIMAB-DYYB
     Dosage: 5MG/KG, UNK (0,2 AND 6 WEEKS, THEN EVERY 8 WEEKS)
     Route: 065
     Dates: start: 20171229, end: 20171229
  7. INFLECTRA [Suspect]
     Active Substance: INFLIXIMAB-DYYB
     Indication: PSORIATIC ARTHROPATHY
     Dosage: 5.6 MG/KG, UNK
     Route: 042
     Dates: start: 20170724, end: 20170724
  8. INFLECTRA [Suspect]
     Active Substance: INFLIXIMAB-DYYB
     Dosage: 5.6 MG/KG, UNK
     Route: 065
     Dates: start: 20171117, end: 20171117

REACTIONS (5)
  - Drug dose omission [Unknown]
  - Inappropriate schedule of drug administration [Unknown]
  - Drug prescribing error [Unknown]
  - Hypersensitivity [Unknown]
  - Incorrect dose administered [Unknown]

NARRATIVE: CASE EVENT DATE: 20170724
